FAERS Safety Report 14203797 (Version 5)
Quarter: 2020Q1

REPORT INFORMATION
  Report Type: Spontaneous
  Country: US (occurrence: US)
  Receive Date: 20171120
  Receipt Date: 20200131
  Transmission Date: 20200409
  Serious: No
  Sender: FDA-Public Use
  Company Number: US-PFIZER INC-2017495902

PATIENT
  Age: 57 Year
  Sex: Female

DRUGS (1)
  1. XELJANZ XR [Suspect]
     Active Substance: TOFACITINIB CITRATE
     Indication: RHEUMATOID ARTHRITIS
     Dosage: 11 MG, 1X/DAY
     Route: 048
     Dates: start: 20170801, end: 201809

REACTIONS (9)
  - Fatigue [Unknown]
  - Nasopharyngitis [Recovered/Resolved]
  - Urinary tract infection [Unknown]
  - Bronchitis [Recovered/Resolved]
  - Diarrhoea [Unknown]
  - Headache [Unknown]
  - Nasal congestion [Unknown]
  - Oropharyngeal pain [Unknown]
  - Sinusitis [Recovered/Resolved]

NARRATIVE: CASE EVENT DATE: 20171102
